FAERS Safety Report 23951757 (Version 2)
Quarter: 2025Q2

REPORT INFORMATION
  Report Type: Report from Study
  Country: US (occurrence: US)
  Receive Date: 20240607
  Receipt Date: 20250517
  Transmission Date: 20250716
  Serious: Yes (Death)
  Sender: AMGEN
  Company Number: US-AMGEN-USASP2024112017

PATIENT
  Age: 22 Year
  Sex: Male
  Weight: 97.052 kg

DRUGS (2)
  1. PROCYSBI [Suspect]
     Active Substance: CYSTEAMINE BITARTRATE
     Indication: Cystinosis
     Dosage: 825 MILLIGRAM, BID (TAKE THREE 75MG PACKETS ALONG WITH TWO 300 MG PACKET BY MOUTH TWICE DAILY. TOTAL
     Route: 048
     Dates: start: 20130731
  2. PROCYSBI [Suspect]
     Active Substance: CYSTEAMINE BITARTRATE
     Route: 048

REACTIONS (2)
  - Death [Fatal]
  - Weight increased [Unknown]

NARRATIVE: CASE EVENT DATE: 20240314
